FAERS Safety Report 4666637-X (Version None)
Quarter: 2005Q2

REPORT INFORMATION
  Report Type: 
  Country: None (occurrence: None)
  Receive Date: 20050519
  Receipt Date: 20050314
  Transmission Date: 20051028
  Serious: Yes (Other)
  Sender: FDA-Public Use
  Company Number: PHBS2005CA03765

PATIENT
  Age: 81 Year
  Sex: Male
  Weight: 80 kg

DRUGS (9)
  1. AREDIA [Suspect]
     Indication: MULTIPLE MYELOMA
     Dosage: 90 MG, QMO
     Route: 042
     Dates: start: 20010501, end: 20040901
  2. EPREX [Concomitant]
     Route: 065
     Dates: start: 20041001
  3. PREDNISONE TAB [Concomitant]
     Dosage: UNK, TID
     Route: 065
     Dates: start: 20020201
  4. CYTOXAN [Concomitant]
  5. THALIDOMIDE [Concomitant]
     Route: 065
     Dates: start: 20030801
  6. DECADRON [Concomitant]
     Route: 065
     Dates: start: 20040101
  7. ALLOPURINOL [Concomitant]
     Route: 065
  8. CARDIZEM [Concomitant]
     Route: 065
  9. MODULON [Concomitant]
     Route: 065

REACTIONS (13)
  - ASEPTIC NECROSIS BONE [None]
  - BONE DISORDER [None]
  - ENANTHEMA [None]
  - FRACTURE [None]
  - GINGIVAL PAIN [None]
  - GINGIVAL SWELLING [None]
  - LOCAL SWELLING [None]
  - PAIN IN JAW [None]
  - PRIMARY SEQUESTRUM [None]
  - SINUS DISORDER [None]
  - TOOTH DISORDER [None]
  - TOOTH EXTRACTION [None]
  - WOUND TREATMENT [None]
